FAERS Safety Report 19732261 (Version 2)
Quarter: 2021Q3

REPORT INFORMATION
  Report Type: Spontaneous
  Country: DE (occurrence: DE)
  Receive Date: 20210820
  Receipt Date: 20210823
  Transmission Date: 20211014
  Serious: Yes (Hospitalization, Other)
  Sender: FDA-Public Use
  Company Number: DE-JAZZ-2020-DE-015841

PATIENT
  Age: 58 Year
  Sex: Male

DRUGS (2)
  1. VYXEOS [Suspect]
     Active Substance: CYTARABINE\DAUNORUBICIN
     Dosage: INDUCTION II WITH VYXEOS LIPOSOMAL, UNKNOWN DOSE
     Route: 065
     Dates: start: 2020
  2. VYXEOS [Suspect]
     Active Substance: CYTARABINE\DAUNORUBICIN
     Indication: ACUTE MYELOID LEUKAEMIA
     Dosage: INDUCTION I WITH VYXEOS LIPOSOMAL, UNKNOWN DOSE
     Route: 065
     Dates: start: 2020, end: 2020

REACTIONS (2)
  - Pyrexia [Unknown]
  - Aplasia [Unknown]

NARRATIVE: CASE EVENT DATE: 2020
